FAERS Safety Report 6686791-8 (Version None)
Quarter: 2010Q2

REPORT INFORMATION
  Report Type: 
  Country: None (occurrence: None)
  Receive Date: 20100415
  Receipt Date: 20100331
  Transmission Date: 20101027
  Serious: Yes (Hospitalization)
  Sender: FDA-Public Use
  Company Number: 233396J09USA

PATIENT
  Age: 28 Year
  Sex: Female

DRUGS (4)
  1. REBIF [Suspect]
     Indication: MULTIPLE SCLEROSIS
     Dosage: 8.8 MCG, 3 IN 1 WK, SUBCUTANEOUS; 44 MCG, 3 IN 1 WK, SUBCUTANEOUS
     Route: 058
     Dates: start: 20091116
  2. REMERON [Suspect]
     Dosage: NOT REPORTED, NOT REPORTED, NOT REPORTED
     Dates: start: 20091120
  3. ANTI-ANXIETY MEDICATION (ALL OTHER THERAPEUTIC PRODUCTS) [Concomitant]
  4. EFFEXOR [Concomitant]

REACTIONS (3)
  - EAR INFECTION [None]
  - OROPHARYNGEAL PAIN [None]
  - SUICIDAL IDEATION [None]
